FAERS Safety Report 25640995 (Version 4)
Quarter: 2025Q4

REPORT INFORMATION
  Report Type: Spontaneous
  Country: US (occurrence: US)
  Receive Date: 20250804
  Receipt Date: 20251106
  Transmission Date: 20260118
  Serious: Yes (Hospitalization, Other)
  Sender: SANOFI AVENTIS
  Company Number: US-SA-2025SA226896

PATIENT
  Age: 89 Year
  Sex: Male
  Weight: 92.971 kg

DRUGS (4)
  1. DUPIXENT [Suspect]
     Active Substance: DUPILUMAB
     Indication: Dermatitis atopic
     Dosage: 300 MG, QOW
     Route: 058
  2. DUPIXENT [Suspect]
     Active Substance: DUPILUMAB
     Indication: Dermatitis
     Dosage: 300 MG, QW
     Route: 058
  3. JAYPIRCA [Concomitant]
     Active Substance: PIRTOBRUTINIB
     Dosage: UNK
  4. DOPTELET [Concomitant]
     Active Substance: AVATROMBOPAG MALEATE
     Dosage: UNK

REACTIONS (5)
  - Leukaemia [Unknown]
  - Hospitalisation [Unknown]
  - Malaise [Unknown]
  - Dermatitis atopic [Unknown]
  - Off label use [Unknown]

NARRATIVE: CASE EVENT DATE: 20250902
